FAERS Safety Report 12885294 (Version 1)
Quarter: 2016Q4

REPORT INFORMATION
  Report Type: Spontaneous
  Country: US (occurrence: US)
  Receive Date: 20161026
  Receipt Date: 20161026
  Transmission Date: 20170207
  Serious: No
  Sender: FDA-Public Use
  Company Number: US-BRISTOL-MYERS SQUIBB COMPANY-BMS-2016-022063

PATIENT
  Age: 65 Year
  Sex: Female
  Weight: 43.54 kg

DRUGS (1)
  1. MEGACE [Suspect]
     Active Substance: MEGESTROL ACETATE
     Indication: WEIGHT DECREASED
     Dosage: 40 MG, TID
     Route: 048

REACTIONS (3)
  - Fatigue [Recovering/Resolving]
  - Fungal infection [Recovering/Resolving]
  - Drug ineffective [Unknown]
